FAERS Safety Report 7543208-9 (Version None)
Quarter: 2011Q2

REPORT INFORMATION
  Report Type: 
  Country: None (occurrence: None)
  Receive Date: 20110525
  Receipt Date: 20110406
  Transmission Date: 20111010
  Serious: Yes (Other)
  Sender: FDA-Public Use
  Company Number: 2011028199

PATIENT
  Sex: Female
  Weight: 72.5755 kg

DRUGS (11)
  1. METHYLPREDNISOLONE [Concomitant]
  2. TRAMADOL HCL [Concomitant]
  3. FLEXERIL (CYCLOBENZAPRINE HYROCHLORIDE) [Concomitant]
  4. HIZENTRA [Suspect]
  5. QVAR (BECLOMETASONE DIPROPRIONATE) [Concomitant]
  6. WARFARIN SODIUM [Concomitant]
  7. CIPRO [Concomitant]
  8. AUGMENTIN (AUGMENTIN /0756801/) [Concomitant]
  9. HIZENTRA [Suspect]
     Indication: HYPOGLOBULINAEMIA
     Dosage: 15 ML (3 G) IN 1 SITE OVE 1 H 15 MIN, EVERY OTHER DAY SUBCUTANEOUS
     Route: 058
     Dates: start: 20110403, end: 20110405
  10. HIZENTRA [Suspect]
     Indication: IMMUNODEFICIENCY COMMON VARIABLE
     Dosage: 15 ML (3 G) IN 1 SITE OVE 1 H 15 MIN, EVERY OTHER DAY SUBCUTANEOUS
     Route: 058
     Dates: start: 20110403, end: 20110405
  11. XOPENEX [Concomitant]

REACTIONS (13)
  - HEART RATE IRREGULAR [None]
  - HYPERHIDROSIS [None]
  - DYSPNOEA [None]
  - FEELING ABNORMAL [None]
  - HEADACHE [None]
  - DIARRHOEA [None]
  - ANXIETY [None]
  - HEART RATE INCREASED [None]
  - DYSARTHRIA [None]
  - PRURITUS [None]
  - PAIN [None]
  - PYREXIA [None]
  - CHEST DISCOMFORT [None]
